FAERS Safety Report 7490721-9 (Version None)
Quarter: 2011Q2

REPORT INFORMATION
  Report Type: 
  Country: None (occurrence: None)
  Receive Date: 20110519
  Receipt Date: 20071010
  Transmission Date: 20111010
  Serious: Yes (Hospitalization, Other)
  Sender: FDA-Public Use
  Company Number: US-BAYER-200713875BWH

PATIENT
  Age: 69 Year
  Sex: Female
  Weight: 86 kg

DRUGS (12)
  1. AMIODARONE HCL [Concomitant]
     Dosage: TITRATED DRIP
     Route: 042
     Dates: start: 20051006, end: 20051006
  2. METFORMIN HCL [Concomitant]
     Route: 048
  3. NITROGLYCERIN [Concomitant]
     Dosage: TITRATED DRIP
     Route: 042
     Dates: start: 20051006, end: 20051006
  4. GLYBURIDE [Concomitant]
     Route: 048
  5. LISINOPRIL [Concomitant]
     Route: 048
  6. HYDROCHLOROTHIAZIDE [Concomitant]
     Route: 048
  7. RED BLOOD CELLS [Concomitant]
     Dosage: 2 UNITS
     Dates: start: 20051006
  8. METOPROLOL TARTRATE [Concomitant]
     Route: 048
  9. GLIPIZIDE [Concomitant]
     Indication: DIABETES MELLITUS
     Route: 048
  10. TRASYLOL [Suspect]
     Indication: CORONARY ARTERY BYPASS
     Dosage: INITIAL  TEST  DOSE OF 1 ML
     Route: 042
     Dates: start: 20051006, end: 20051006
  11. TRASYLOL [Suspect]
     Dosage: LOADING DOSE OF  200CC LOADING DOSE, FOLLOWED BY 50CC/HOUR INFUSION. 700CC WAS USED TO PRIME
     Dates: start: 20051006, end: 20051006
  12. HEPARIN [Concomitant]
     Dosage: 75000 U, UNK
     Route: 042
     Dates: start: 20051006, end: 20051006

REACTIONS (12)
  - NEUROGENIC SHOCK [None]
  - GENERAL PHYSICAL HEALTH DETERIORATION [None]
  - ASTHENIA [None]
  - CEREBROVASCULAR ACCIDENT [None]
  - PAIN [None]
  - CARDIAC FAILURE CONGESTIVE [None]
  - INJURY [None]
  - PSYCHOGENIC PAIN DISORDER [None]
  - MYOCARDIAL INFARCTION [None]
  - URINARY TRACT INFECTION [None]
  - CARDIAC DISORDER [None]
  - ATELECTASIS [None]
